FAERS Safety Report 7965241-5 (Version None)
Quarter: 2011Q4

REPORT INFORMATION
  Report Type: 
  Country: None (occurrence: None)
  Receive Date: 20111208
  Receipt Date: 20111128
  Transmission Date: 20120403
  Serious: Yes (Hospitalization)
  Sender: FDA-Public Use
  Company Number: US-BAYER-201038742NA

PATIENT
  Age: 40 Year
  Sex: Female
  Weight: 104.31 kg

DRUGS (3)
  1. YAZ [Suspect]
     Indication: CONTRACEPTION
     Dates: start: 20061204, end: 20061231
  2. IBUPROFEN [Concomitant]
     Indication: HEADACHE
     Dosage: UNK
     Dates: start: 20061227, end: 20061229
  3. ASCORBIC ACID [Concomitant]
     Dosage: UNK
     Dates: start: 20010101

REACTIONS (5)
  - SUPERIOR SAGITTAL SINUS THROMBOSIS [None]
  - GAIT DISTURBANCE [None]
  - HEADACHE [None]
  - COORDINATION ABNORMAL [None]
  - SPEECH DISORDER [None]
